FAERS Safety Report 13888078 (Version 2)
Quarter: 2017Q4

REPORT INFORMATION
  Report Type: Spontaneous
  Country: US (occurrence: US)
  Receive Date: 20170821
  Receipt Date: 20171211
  Transmission Date: 20180320
  Serious: Yes (Hospitalization)
  Sender: FDA-Public Use
  Company Number: US-PFIZER INC-2017353664

PATIENT
  Age: 20 Year
  Sex: Male

DRUGS (5)
  1. DEXMEDETOMIDINE. [Suspect]
     Active Substance: DEXMEDETOMIDINE
     Indication: ADRENOCORTICAL INSUFFICIENCY ACUTE
     Dosage: 2 UG/KG, UNK INTRANASAL (43 MCG IN EACH NOSTRIL; THREE ADDITIONAL TIMES, WITH 146, 343 AND 300 MIN)
     Route: 045
  2. DIAZEPAM. [Concomitant]
     Active Substance: DIAZEPAM
     Indication: RILEY-DAY SYNDROME
  3. CLONIDINE. [Concomitant]
     Active Substance: CLONIDINE
     Indication: RILEY-DAY SYNDROME
  4. DIAZEPAM. [Concomitant]
     Active Substance: DIAZEPAM
     Indication: ADRENOCORTICAL INSUFFICIENCY ACUTE
     Dosage: 10 MG, 2X/DAY (EVERY 12 H, ADMINISTERED BY GASTROSTOMY TUBE)
  5. CLONIDINE. [Concomitant]
     Active Substance: CLONIDINE
     Indication: ADRENOCORTICAL INSUFFICIENCY ACUTE
     Dosage: 0.1 MG, UNK (EVERY 4-6 H, ADMINISTERED BY GASTROSTOMY TUBE)

REACTIONS (2)
  - Intestinal pseudo-obstruction [Recovered/Resolved]
  - Intestinal dilatation [Recovered/Resolved]
